FAERS Safety Report 15559184 (Version 3)
Quarter: 2020Q1

REPORT INFORMATION
  Report Type: Spontaneous
  Country: CA (occurrence: CA)
  Receive Date: 20181029
  Receipt Date: 20200116
  Transmission Date: 20200409
  Serious: Yes (Other)
  Sender: FDA-Public Use
  Company Number: CA-TEVA-2018-CA-966987

PATIENT
  Age: 72 Year
  Sex: Male

DRUGS (2)
  1. SALBUTAMOL [Suspect]
     Active Substance: ALBUTEROL
     Indication: ASTHMA
     Route: 065
  2. NUCALA [Suspect]
     Active Substance: MEPOLIZUMAB
     Indication: ASTHMA
     Route: 042

REACTIONS (9)
  - Dyspnoea [Unknown]
  - Muscular weakness [Unknown]
  - Type 2 diabetes mellitus [Unknown]
  - Pain [Unknown]
  - Asthma [Unknown]
  - Condition aggravated [Unknown]
  - Drug ineffective [Unknown]
  - Back pain [Unknown]
  - Hypoaesthesia [Unknown]
